FAERS Safety Report 6117396-5 (Version None)
Quarter: 2009Q1

REPORT INFORMATION
  Report Type: 
  Country: None (occurrence: None)
  Receive Date: 20090314
  Receipt Date: 20090115
  Transmission Date: 20090719
  Serious: No
  Sender: FDA-Public Use
  Company Number: US-ABBOTT-09P-163-0498265-00

PATIENT
  Sex: Female

DRUGS (5)
  1. HUMIRA [Suspect]
     Indication: JUVENILE ARTHRITIS
     Route: 058
     Dates: start: 20081218
  2. HUMIRA [Suspect]
  3. NAPROSYN [Concomitant]
     Indication: JUVENILE ARTHRITIS
     Dosage: NOT REPORTED
  4. NAPROSYN [Concomitant]
  5. DEPO-PROVERA [Concomitant]
     Indication: MENSTRUAL CYCLE MANAGEMENT
     Dosage: NOT REPORTED

REACTIONS (1)
  - INJECTION SITE PAIN [None]
